FAERS Safety Report 14110438 (Version 1)
Quarter: 2017Q4

REPORT INFORMATION
  Report Type: Spontaneous
  Country: US (occurrence: US)
  Receive Date: 20171020
  Receipt Date: 20171020
  Transmission Date: 20180321
  Serious: No
  Sender: FDA-Public Use
  Company Number: US-TEVA-802149USA

PATIENT
  Sex: Male

DRUGS (1)
  1. AUSTEDO [Suspect]
     Active Substance: DEUTETRABENAZINE
     Dosage: ONE 9MG AND ONE 6MG IN THE MORNING INADVERTENTLY
     Route: 065
     Dates: start: 20170821, end: 20170821

REACTIONS (3)
  - Sedation [Recovering/Resolving]
  - Accidental exposure to product [Unknown]
  - Slow speech [Recovering/Resolving]

NARRATIVE: CASE EVENT DATE: 20170821
